FAERS Safety Report 6298507-8 (Version None)
Quarter: 2009Q3

REPORT INFORMATION
  Report Type: 
  Country: None (occurrence: None)
  Receive Date: 20090805
  Receipt Date: 20090727
  Transmission Date: 20100115
  Serious: Yes (Life-Threatening, Hospitalization)
  Sender: FDA-Public Use
  Company Number: GB-MERCK-0907GBR00097

PATIENT
  Age: 66 Year
  Sex: Female

DRUGS (8)
  1. FOSAMAX [Suspect]
     Indication: OSTEOPOROSIS
     Route: 048
     Dates: start: 20080101
  2. ASPIRIN [Concomitant]
     Route: 065
  3. FLUOXETINE [Concomitant]
     Route: 065
  4. GABAPENTIN [Concomitant]
     Route: 065
  5. OMEPRAZOLE [Concomitant]
     Route: 065
  6. SIMVASTATIN [Concomitant]
     Route: 065
  7. LEVOTHYROXINE SODIUM [Concomitant]
     Route: 065
  8. TRAMADOL HYDROCHLORIDE [Concomitant]
     Route: 065

REACTIONS (1)
  - OESOPHAGEAL ADENOCARCINOMA [None]
